FAERS Safety Report 10363790 (Version 5)
Quarter: 2015Q1

REPORT INFORMATION
  Report Type: Spontaneous
  Country: JP (occurrence: JP)
  Receive Date: 20140805
  Receipt Date: 20150204
  Transmission Date: 20150720
  Serious: Yes (Death, Hospitalization)
  Sender: FDA-Public Use
  Company Number: JP-B.I. PHARMACEUTICALS,INC./RIDGEFIELD-2014-BI-30651NB

PATIENT
  Age: 79 Year
  Sex: Male
  Weight: 49.8 kg

DRUGS (5)
  1. BETANIS [Concomitant]
     Active Substance: MIRABEGRON
     Indication: PRODUCT USED FOR UNKNOWN INDICATION
     Dosage: 50 MG
     Route: 065
     Dates: start: 20140114
  2. GILOTRIF [Suspect]
     Active Substance: AFATINIB
     Indication: LUNG NEOPLASM MALIGNANT
     Dosage: 40 MG
     Route: 048
     Dates: start: 20140625, end: 20140630
  3. HACHIAZULE [Concomitant]
     Indication: STOMATITIS
     Dosage: 4 G
     Route: 002
     Dates: start: 20140629, end: 20140712
  4. FLIVAS OD [Concomitant]
     Indication: PRODUCT USED FOR UNKNOWN INDICATION
     Dosage: 25 MG
     Route: 065
     Dates: start: 20131217
  5. ALLOID G [Concomitant]
     Active Substance: SODIUM ALGINATE
     Indication: CHRONIC GASTRITIS
     Dosage: 60 ML
     Route: 048
     Dates: start: 20140624, end: 20140707

REACTIONS (7)
  - Diarrhoea [Recovered/Resolved]
  - Nausea [Unknown]
  - Interstitial lung disease [Not Recovered/Not Resolved]
  - Vomiting [Unknown]
  - Malignant neoplasm progression [Fatal]
  - Malignant ascites [Fatal]
  - Stomatitis [Recovered/Resolved]

NARRATIVE: CASE EVENT DATE: 20140628
